FAERS Safety Report 26104118 (Version 2)
Quarter: 2025Q4

REPORT INFORMATION
  Report Type: Spontaneous
  Country: US (occurrence: US)
  Receive Date: 20251129
  Receipt Date: 20251209
  Transmission Date: 20260118
  Serious: Yes (Other)
  Sender: ALEXION PHARMACEUTICALS
  Company Number: US-ASTRAZENECA-202511GLO021295US

PATIENT
  Sex: Male

DRUGS (2)
  1. KOSELUGO [Suspect]
     Active Substance: SELUMETINIB
     Indication: Rosai-Dorfman syndrome
     Dosage: 1 MILLIGRAM/KILOGRAM, BID
     Route: 065
  2. CLOFARABINE [Suspect]
     Active Substance: CLOFARABINE
     Indication: Rosai-Dorfman syndrome
     Dosage: 25MG/M2/DAY, DAYS 1-5
     Route: 065

REACTIONS (4)
  - Hyperbilirubinaemia [Unknown]
  - Rosai-Dorfman syndrome [Unknown]
  - Vision blurred [Unknown]
  - Off label use [Unknown]
